FAERS Safety Report 4730629-2 (Version None)
Quarter: 2005Q3

REPORT INFORMATION
  Report Type: 
  Country: None (occurrence: None)
  Receive Date: 20050725
  Receipt Date: 20050308
  Transmission Date: 20060218
  Serious: No
  Sender: FDA-Public Use
  Company Number: USA050392708

PATIENT
  Age: 44 Year
  Sex: Male
  Weight: 91 kg

DRUGS (7)
  1. STRATTERA [Suspect]
     Indication: DISTURBANCE IN ATTENTION
     Dosage: 25 MG DAY
     Dates: start: 20050201
  2. CLONAZEPAM [Concomitant]
  3. AVANDIA [Concomitant]
  4. MUSCLE RELAXANT [Concomitant]
  5. ACIPHEX (RABPRAZOLE SODIUM) [Concomitant]
  6. MULTIVITAMINS NOS (MULTIVITAMINS NOS) [Concomitant]
  7. TYLENOL (CAPLET) [Concomitant]

REACTIONS (5)
  - BACK PAIN [None]
  - DYSPNOEA [None]
  - DYSURIA [None]
  - TESTICULAR PAIN [None]
  - WEIGHT INCREASED [None]
